FAERS Safety Report 25586815 (Version 1)
Quarter: 2025Q3

REPORT INFORMATION
  Report Type: Spontaneous
  Country: US (occurrence: None)
  Receive Date: 20250721
  Receipt Date: 20250721
  Transmission Date: 20251021
  Serious: Yes (unspecified)
  Sender: FDA-CTU
  Company Number: None

PATIENT
  Age: 51 Year
  Sex: Female
  Weight: 90 kg

DRUGS (7)
  1. 7-HYDROXYMITRAGYNINE [Suspect]
     Active Substance: 7-HYDROXYMITRAGYNINE
     Indication: Spinal pain
     Dates: start: 20250701
  2. PROZAC [Concomitant]
     Active Substance: FLUOXETINE HYDROCHLORIDE
  3. WELLBUTRIN XL [Concomitant]
     Active Substance: BUPROPION HYDROCHLORIDE
  4. TOLTERODINE [Concomitant]
     Active Substance: TOLTERODINE
  5. Daily multi 50 [Concomitant]
  6. MELATONIN [Concomitant]
     Active Substance: MELATONIN
  7. MAGNESIUM [Concomitant]
     Active Substance: MAGNESIUM

REACTIONS (5)
  - Diarrhoea [None]
  - Vomiting [None]
  - Hyperhidrosis [None]
  - Withdrawal syndrome [None]
  - Heart rate increased [None]

NARRATIVE: CASE EVENT DATE: 20250716
